FAERS Safety Report 5144813-X (Version None)
Quarter: 2006Q4

REPORT INFORMATION
  Report Type: 
  Country: None (occurrence: None)
  Receive Date: 20061103
  Receipt Date: 20061103
  Transmission Date: 20070319
  Serious: Yes (Death)
  Sender: FDA-Public Use
  Company Number: None

PATIENT
  Age: 75 Year
  Sex: Male

DRUGS (12)
  1. REVLIMID [Suspect]
     Indication: MULTIPLE MYELOMA
     Dosage: 25MG DAILY PO
     Route: 048
     Dates: start: 20060913, end: 20060917
  2. ATROPINE [Concomitant]
  3. FLUOXETINE [Concomitant]
  4. MORPHINE SULFATE [Concomitant]
  5. REVLIMID [Concomitant]
  6. DEXAMETHASONE TAB [Concomitant]
  7. CIPROFLOXACIN [Concomitant]
  8. OMEPRAZOLE [Concomitant]
  9. FELODIPINE [Concomitant]
  10. DOCUSATE SODIUM [Concomitant]
  11. SENNA [Concomitant]
  12. FERROUS SULFATE TAB [Concomitant]

REACTIONS (7)
  - ABASIA [None]
  - ASTHENIA [None]
  - DEHYDRATION [None]
  - DISEASE PROGRESSION [None]
  - HYPERCALCAEMIA [None]
  - METASTASES TO CENTRAL NERVOUS SYSTEM [None]
  - MUSCULAR WEAKNESS [None]
